FAERS Safety Report 15800755 (Version 1)
Quarter: 2019Q1

REPORT INFORMATION
  Report Type: Spontaneous
  Country: GB (occurrence: GB)
  Receive Date: 20190109
  Receipt Date: 20190109
  Transmission Date: 20190417
  Serious: Yes (Other)
  Sender: FDA-Public Use
  Company Number: GB-TEVA-2019-GB-996240

PATIENT
  Age: 63 Year
  Sex: Female
  Weight: 73.02 kg

DRUGS (1)
  1. NITROFURANTOIN. [Suspect]
     Active Substance: NITROFURANTOIN
     Indication: URINARY TRACT INFECTION
     Route: 048
     Dates: start: 20171005, end: 20171005

REACTIONS (2)
  - Fatigue [Unknown]
  - Heart rate increased [Recovered/Resolved with Sequelae]

NARRATIVE: CASE EVENT DATE: 20171005
